FAERS Safety Report 6347932-5 (Version None)
Quarter: 2009Q3

REPORT INFORMATION
  Report Type: 
  Country: None (occurrence: None)
  Receive Date: 20090910
  Receipt Date: 20090902
  Transmission Date: 20100115
  Serious: Yes (Other)
  Sender: FDA-Public Use
  Company Number: PHHY2009AU35509

PATIENT
  Sex: Male

DRUGS (3)
  1. GLEEVEC [Suspect]
     Indication: CHRONIC MYELOID LEUKAEMIA
     Dosage: 100 MG DAILY
     Route: 048
     Dates: start: 20050201
  2. GLEEVEC [Suspect]
     Route: 048
  3. GLEEVEC [Suspect]
     Dosage: 100 MG, UNK
     Route: 048
     Dates: start: 20090301

REACTIONS (3)
  - BURSITIS [None]
  - CHROMOSOME ANALYSIS ABNORMAL [None]
  - PAIN [None]
